FAERS Safety Report 20064199 (Version 1)
Quarter: 2021Q4

REPORT INFORMATION
  Report Type: Report from Study
  Country: US (occurrence: US)
  Receive Date: 20211112
  Receipt Date: 20211112
  Transmission Date: 20220303
  Serious: Yes (Death)
  Sender: FDA-Public Use
  Company Number: US-PFIZER INC-2021715055

PATIENT
  Age: 87 Year
  Sex: Female

DRUGS (1)
  1. IBRANCE [Suspect]
     Active Substance: PALBOCICLIB
     Indication: Breast cancer metastatic
     Dosage: 100 MG, CYCLIC, [ONCE DAILY, (CYCLE IS 21 OUT OF 28 DAYS)]
     Route: 048
     Dates: start: 202105, end: 202110

REACTIONS (6)
  - Death [Fatal]
  - Intentional dose omission [Unknown]
  - Blood glucose increased [Unknown]
  - Skin discolouration [Unknown]
  - Eye disorder [Unknown]
  - Decubitus ulcer [Recovered/Resolved]
